FAERS Safety Report 17350318 (Version 1)
Quarter: 2020Q1

REPORT INFORMATION
  Report Type: Spontaneous
  Country: FR (occurrence: FR)
  Receive Date: 20200130
  Receipt Date: 20200130
  Transmission Date: 20200409
  Serious: Yes (Other)
  Sender: FDA-Public Use
  Company Number: FR-AMGEN-FRASP2020014564

PATIENT
  Age: 44 Year
  Sex: Female

DRUGS (2)
  1. LEFLUNOMIDE. [Concomitant]
     Active Substance: LEFLUNOMIDE
     Indication: ARTHRITIS
     Dosage: 20 MG, DAILY
     Dates: start: 2010
  2. ENBREL [Suspect]
     Active Substance: ETANERCEPT
     Indication: ARTHRITIS
     Dosage: UNK
     Route: 065
     Dates: start: 2009, end: 201904

REACTIONS (6)
  - Swelling of eyelid [Unknown]
  - Peripheral swelling [Unknown]
  - Asthma [Unknown]
  - Pharyngeal swelling [Unknown]
  - Swelling face [Unknown]
  - Arthritis [Unknown]

NARRATIVE: CASE EVENT DATE: 2018
